FAERS Safety Report 6381582-X (Version None)
Quarter: 2009Q3

REPORT INFORMATION
  Report Type: 
  Country: None (occurrence: None)
  Receive Date: 20090925
  Receipt Date: 20090914
  Transmission Date: 20100115
  Serious: Yes (Hospitalization)
  Sender: FDA-Public Use
  Company Number: GXKR2009KR10227

PATIENT
  Age: 59 Year
  Sex: Female

DRUGS (6)
  1. CIPROFLOXACIN [Suspect]
     Indication: RENAL ABSCESS
     Dosage: 1000 MG/DAY, ORAL 400 MG/DAY, INTRAVENOUS
     Route: 048
     Dates: start: 20070113
  2. CIPROFLOXACIN [Suspect]
     Indication: RENAL ABSCESS
     Dosage: 1000 MG/DAY, ORAL 400 MG/DAY, INTRAVENOUS
     Route: 048
  3. METRONIDAZOLE [Concomitant]
  4. LAMIVUDINE [Concomitant]
  5. SPIRONOLACTONE [Concomitant]
  6. FUROSEMIDE [Concomitant]

REACTIONS (12)
  - AGITATION [None]
  - BALLISMUS [None]
  - BLOOD CALCIUM DECREASED [None]
  - BLOOD PHOSPHORUS DECREASED [None]
  - CAROTID BRUIT [None]
  - CONFUSIONAL STATE [None]
  - DISTURBANCE IN ATTENTION [None]
  - DYSKINESIA [None]
  - INTERNATIONAL NORMALISED RATIO INCREASED [None]
  - IRRITABILITY [None]
  - MENTAL DISORDER [None]
  - SPLENOMEGALY [None]
